FAERS Safety Report 4600502-9 (Version None)
Quarter: 2005Q1

REPORT INFORMATION
  Report Type: 
  Country: None (occurrence: None)
  Receive Date: 20050304
  Receipt Date: 20050222
  Transmission Date: 20050727
  Serious: Yes (Death)
  Sender: FDA-Public Use
  Company Number: 2005037979

PATIENT
  Sex: Male

DRUGS (2)
  1. BEXTRA [Suspect]
     Indication: ILL-DEFINED DISORDER
     Dates: start: 19980101, end: 19980708
  2. CELEBREXA (CELECOXIB) [Suspect]
     Indication: ILL-DEFINED DISORDER
     Dates: start: 20030616

REACTIONS (1)
  - CEREBROVASCULAR ACCIDENT [None]
